FAERS Safety Report 22321631 (Version 2)
Quarter: 2023Q2

REPORT INFORMATION
  Report Type: Spontaneous
  Country: JP (occurrence: JP)
  Receive Date: 20230515
  Receipt Date: 20230522
  Transmission Date: 20230722
  Serious: Yes (Hospitalization, Other)
  Sender: FDA-Public Use
  Company Number: JP-ONO-2023JP011546

PATIENT
  Age: 89 Year
  Sex: Male
  Weight: 50.6 kg

DRUGS (28)
  1. SITAGLIPTIN [Suspect]
     Active Substance: SITAGLIPTIN
     Indication: Type 2 diabetes mellitus
     Dosage: STOP DATE:27-JAN-2023
     Route: 048
     Dates: end: 20230127
  2. MINOCYCLINE HYDROCHLORIDE [Suspect]
     Active Substance: MINOCYCLINE HYDROCHLORIDE
     Indication: Pemphigoid
     Dosage: UNK
     Route: 048
     Dates: start: 20230214, end: 20230313
  3. NICOTINAMIDE [Suspect]
     Active Substance: NIACINAMIDE
     Indication: Pemphigoid
     Dosage: UNK
     Route: 048
     Dates: start: 20230214, end: 20230313
  4. OLOPATADINE HYDROCHLORIDE [Suspect]
     Active Substance: OLOPATADINE HYDROCHLORIDE
     Dosage: UNK
     Route: 048
     Dates: start: 20230301, end: 20230313
  5. HYALURONATE SODIUM [Concomitant]
     Active Substance: HYALURONATE SODIUM
     Dosage: UNK
     Route: 047
  6. LATANOPROST [Concomitant]
     Active Substance: LATANOPROST
     Dosage: UNK
     Route: 047
  7. FEXOFENADINE HYDROCHLORIDE [Concomitant]
     Active Substance: FEXOFENADINE HYDROCHLORIDE
     Dosage: STOP DATE: 16-FEB-2023
     Route: 048
  8. FEXOFENADINE HYDROCHLORIDE [Concomitant]
     Active Substance: FEXOFENADINE HYDROCHLORIDE
     Dosage: UNK
     Route: 048
     Dates: start: 20230313, end: 20230501
  9. EURAX [Concomitant]
     Active Substance: CROTAMITON
     Dosage: STOP DATE:27-JAN-2023
     Route: 061
  10. MYSER [DIFLUPREDNATE] [Concomitant]
     Dosage: STOP DATE:27-JAN-2023
     Route: 061
     Dates: end: 20230127
  11. BETAMETHASONE DIPROPIONATE [Concomitant]
     Active Substance: BETAMETHASONE DIPROPIONATE
     Dosage: STOP DATE:27-JAN-2023
     Route: 061
     Dates: end: 20230127
  12. NEXIUM [Concomitant]
     Active Substance: ESOMEPRAZOLE MAGNESIUM
     Dosage: UNK
     Route: 048
  13. ALLOPURINOL [Concomitant]
     Active Substance: ALLOPURINOL
     Dosage: STOP DATE:27-JAN-2023
     Route: 048
     Dates: end: 20230127
  14. MAGNESIUM OXIDE [Concomitant]
     Active Substance: MAGNESIUM OXIDE
     Dosage: UNK
     Route: 048
  15. MAGNESIUM OXIDE [Concomitant]
     Active Substance: MAGNESIUM OXIDE
     Dosage: UNK
     Route: 048
  16. MAGNESIUM OXIDE [Concomitant]
     Active Substance: MAGNESIUM OXIDE
     Dosage: UNK
     Route: 048
  17. VIBEGRON [Concomitant]
     Active Substance: VIBEGRON
     Dosage: STOP DATE:27-JAN-2023
     Route: 048
     Dates: end: 20230127
  18. ROSUVASTATIN CALCIUM [Concomitant]
     Active Substance: ROSUVASTATIN CALCIUM
     Dosage: STOP DATE:13-MAR-2023
     Route: 048
     Dates: end: 20230313
  19. SODIUM FERROUS CITRATE [Concomitant]
     Active Substance: SODIUM FERROUS CITRATE
     Dosage: STOP DATE:27-JAN-2023
     Route: 048
     Dates: end: 20230127
  20. EDOXABAN TOSYLATE [Concomitant]
     Active Substance: EDOXABAN TOSYLATE
     Dosage: UNK
     Route: 048
  21. EDOXABAN TOSYLATE [Concomitant]
     Active Substance: EDOXABAN TOSYLATE
     Dosage: UNK
     Route: 048
  22. EDOXABAN TOSYLATE [Concomitant]
     Active Substance: EDOXABAN TOSYLATE
     Dosage: UNK
     Route: 048
  23. AMLODIPINE BESYLATE [Concomitant]
     Active Substance: AMLODIPINE BESYLATE
     Dosage: STOP DATE:27-JAN-2023
     Route: 048
     Dates: end: 20230127
  24. CANDESARTAN [Concomitant]
     Active Substance: CANDESARTAN
     Dosage: STOP DATE:27-JAN-2023
     Route: 048
     Dates: end: 20230127
  25. PILSICAINIDE HYDROCHLORIDE [Concomitant]
     Active Substance: PILSICAINIDE HYDROCHLORIDE
     Dosage: STOP DATE:27-JAN-2023
     Route: 048
     Dates: end: 20230127
  26. FURSULTIAMINE [Concomitant]
     Active Substance: FURSULTIAMINE
     Dosage: STOP DATE:27-JAN-2023
     Route: 048
     Dates: end: 20230127
  27. METHYLCOBALAMIN [Concomitant]
     Active Substance: METHYLCOBALAMIN
     Dosage: STOP DATE:27-JAN-2023
     Route: 048
     Dates: end: 20230127
  28. DAPAGLIFLOZIN [Concomitant]
     Active Substance: DAPAGLIFLOZIN
     Dosage: UNK
     Route: 065
     Dates: start: 20230127, end: 20230127

REACTIONS (3)
  - Pemphigoid [Not Recovered/Not Resolved]
  - Cardiac failure [Unknown]
  - Drug-induced liver injury [Recovering/Resolving]

NARRATIVE: CASE EVENT DATE: 20230127
